FAERS Safety Report 13900802 (Version 1)
Quarter: 2017Q3

REPORT INFORMATION
  Report Type: Spontaneous
  Country: JP (occurrence: JP)
  Receive Date: 20170823
  Receipt Date: 20170823
  Transmission Date: 20171127
  Serious: Yes (Death, Other)
  Sender: FDA-Public Use
  Company Number: JP-MYLANLABS-2017M1052623

PATIENT

DRUGS (1)
  1. PALIPERIDONE. [Suspect]
     Active Substance: PALIPERIDONE
     Indication: SCHIZOPHRENIA
     Dosage: 150 MG
     Route: 030

REACTIONS (5)
  - Circulatory collapse [Unknown]
  - Toxicity to various agents [Recovering/Resolving]
  - Extrapyramidal disorder [Recovered/Resolved]
  - Long QT syndrome [Recovered/Resolved]
  - Multiple organ dysfunction syndrome [Fatal]
